FAERS Safety Report 7659923-2 (Version None)
Quarter: 2011Q3

REPORT INFORMATION
  Report Type: 
  Country: None (occurrence: None)
  Receive Date: 20110805
  Receipt Date: 20110727
  Transmission Date: 20111222
  Serious: Yes (Hospitalization)
  Sender: FDA-Public Use
  Company Number: DK-ASTRAZENECA-2007SE05726

PATIENT
  Age: 34 Year
  Sex: Male
  Weight: 79 kg

DRUGS (2)
  1. ALPROX [Concomitant]
     Route: 048
  2. SEROQUEL [Suspect]
     Indication: SCHIZOPHRENIA, PARANOID TYPE
     Route: 048
     Dates: start: 20060831, end: 20070804

REACTIONS (5)
  - COLD SWEAT [None]
  - DYSPNOEA [None]
  - PERSONALITY CHANGE [None]
  - TREMOR [None]
  - MUSCLE SPASMS [None]
